FAERS Safety Report 7850485-3 (Version None)
Quarter: 2011Q4

REPORT INFORMATION
  Report Type: 
  Country: None (occurrence: None)
  Receive Date: 20111026
  Receipt Date: 20111026
  Transmission Date: 20120403
  Serious: Yes (Hospitalization)
  Sender: FDA-Public Use
  Company Number: None

PATIENT
  Age: 65 Year
  Sex: Male
  Weight: 88.45 kg

DRUGS (4)
  1. BENICAR [Suspect]
     Indication: HYPERTENSION
     Dosage: 20
     Route: 048
     Dates: start: 20020713, end: 20110621
  2. TAMSULIN HCL [Concomitant]
  3. METOPROLOL TARTRATE [Concomitant]
     Route: 048
  4. AVODART [Concomitant]

REACTIONS (2)
  - WEIGHT DECREASED [None]
  - COLITIS [None]
